FAERS Safety Report 6976154-X (Version None)
Quarter: 2010Q3

REPORT INFORMATION
  Report Type: 
  Country: None (occurrence: None)
  Receive Date: 20100910
  Receipt Date: 20100901
  Transmission Date: 20110219
  Serious: Yes (Hospitalization, Disabling)
  Sender: FDA-Public Use
  Company Number: BR-ASTRAZENECA-2010SE41696

PATIENT
  Age: 84 Year
  Sex: Female
  Weight: 68 kg

DRUGS (6)
  1. ATACAND HCT [Suspect]
     Indication: HYPERTENSION
     Dosage: 16/12.5 MG OD
     Route: 048
     Dates: start: 20040101
  2. SEROQUEL [Suspect]
     Indication: DEMENTIA ALZHEIMER'S TYPE
     Route: 048
     Dates: start: 20080101
  3. SPIRONOLACTONE [Concomitant]
     Route: 048
     Dates: start: 20050101, end: 20100801
  4. MEMANTINE HCL [Concomitant]
     Indication: CONFUSIONAL STATE
     Route: 048
     Dates: start: 20091101, end: 20100201
  5. ALOIS [Concomitant]
     Indication: CONFUSIONAL STATE
     Route: 048
     Dates: start: 20100201
  6. NEBIVOLOL HCL [Concomitant]
     Route: 048
     Dates: start: 20050101, end: 20100801

REACTIONS (4)
  - DEMENTIA ALZHEIMER'S TYPE [None]
  - FEMUR FRACTURE [None]
  - OFF LABEL USE [None]
  - RENAL FAILURE [None]
